FAERS Safety Report 8275862-0 (Version None)
Quarter: 2012Q2

REPORT INFORMATION
  Report Type: 
  Country: None (occurrence: None)
  Receive Date: 20120410
  Receipt Date: 20120410
  Transmission Date: 20120825
  Serious: Yes (Other)
  Sender: FDA-Public Use
  Company Number: None

PATIENT
  Age: 70 Year
  Sex: Male

DRUGS (2)
  1. NITROGLYCERIN [Concomitant]
  2. LISTERINE ZERO MOUTHWASH CLEAN MINT (ORAL CARE PRODUCTS) ORAL RINSE [Suspect]
     Indication: DENTAL DISORDER PROPHYLAXIS
     Dosage: ,1 IN 1 DAY, ORAL; , 1 IN 1 DAY, ORAL
     Route: 048
     Dates: start: 20120318, end: 20120318

REACTIONS (6)
  - MALAISE [None]
  - RESTLESSNESS [None]
  - COUGH [None]
  - ANGINA PECTORIS [None]
  - HEART RATE DECREASED [None]
  - BLOOD PRESSURE ABNORMAL [None]
